FAERS Safety Report 25428770 (Version 2)
Quarter: 2025Q3

REPORT INFORMATION
  Report Type: Spontaneous
  Country: US (occurrence: US)
  Receive Date: 20250612
  Receipt Date: 20250702
  Transmission Date: 20251021
  Serious: Yes (Other)
  Sender: INCYTE
  Company Number: US-INCYTE CORPORATION-2025IN006243

PATIENT
  Age: 73 Year

DRUGS (2)
  1. JAKAFI [Suspect]
     Active Substance: RUXOLITINIB
     Indication: Plasma cell myeloma
     Dosage: 20 MILLIGRAM, BID
  2. ARANESP [Concomitant]
     Active Substance: DARBEPOETIN ALFA
     Indication: Product used for unknown indication
     Route: 065

REACTIONS (4)
  - Thrombosis [Unknown]
  - Atrial fibrillation [Unknown]
  - Fatigue [Unknown]
  - Off label use [Unknown]
